FAERS Safety Report 24148211 (Version 2)
Quarter: 2024Q4

REPORT INFORMATION
  Report Type: Spontaneous
  Country: US (occurrence: US)
  Receive Date: 20240729
  Receipt Date: 20241023
  Transmission Date: 20250115
  Serious: No
  Sender: SANOFI AVENTIS
  Company Number: US-SA-SAC20240726000897

PATIENT
  Sex: Female

DRUGS (24)
  1. DUPIXENT [Suspect]
     Active Substance: DUPILUMAB
     Indication: Asthma
     Dosage: 300 MG QOW
     Route: 058
     Dates: start: 20231222
  2. ALPRAZOLAM [Concomitant]
     Active Substance: ALPRAZOLAM
     Dosage: UNK
  3. BACLOFEN [Concomitant]
     Active Substance: BACLOFEN
     Dosage: UNK
  4. BUDESONIDE [Concomitant]
     Active Substance: BUDESONIDE
  5. ESTRADIOL [Concomitant]
     Active Substance: ESTRADIOL
     Dosage: UNK
  6. FLUOXETINE [Concomitant]
     Active Substance: FLUOXETINE HYDROCHLORIDE
  7. GABAPENTIN [Concomitant]
     Active Substance: GABAPENTIN
  8. MONTELUKAST [Concomitant]
     Active Substance: MONTELUKAST
  9. OMEPRAZOLE [Concomitant]
     Active Substance: OMEPRAZOLE
  10. ONDANSETRON [Concomitant]
     Active Substance: ONDANSETRON
  11. ORPHENADRINE [Concomitant]
     Active Substance: ORPHENADRINE
  12. PREDNISONE [Concomitant]
     Active Substance: PREDNISONE
  13. RIZATRIPTAN [Concomitant]
     Active Substance: RIZATRIPTAN
  14. SYMBICORT [Concomitant]
     Active Substance: BUDESONIDE\FORMOTEROL FUMARATE DIHYDRATE
  15. TIZANIDINE [Concomitant]
     Active Substance: TIZANIDINE
  16. VENLAFAXINE [Concomitant]
     Active Substance: VENLAFAXINE HYDROCHLORIDE
  17. ESTRADIOL [Concomitant]
     Active Substance: ESTRADIOL
  18. FLUOXETINE [Concomitant]
     Active Substance: FLUOXETINE HYDROCHLORIDE
  19. FLUOXETINE [Concomitant]
     Active Substance: FLUOXETINE HYDROCHLORIDE
  20. NORTRIPTYLINE [Concomitant]
     Active Substance: NORTRIPTYLINE
  21. METOCLOPRAMIDE [Concomitant]
     Active Substance: METOCLOPRAMIDE
  22. PREDNISONE [Concomitant]
     Active Substance: PREDNISONE
  23. AJOVY [Concomitant]
     Active Substance: FREMANEZUMAB-VFRM
  24. CYCLOBENZAPRINE [Concomitant]
     Active Substance: CYCLOBENZAPRINE

REACTIONS (2)
  - Impaired quality of life [Unknown]
  - Drug ineffective [Unknown]
